FAERS Safety Report 7678816-8 (Version None)
Quarter: 2011Q3

REPORT INFORMATION
  Report Type: 
  Country: None (occurrence: None)
  Receive Date: 20110811
  Receipt Date: 20110808
  Transmission Date: 20111222
  Serious: Yes (Disabling, Other)
  Sender: FDA-Public Use
  Company Number: GB-CEPHALON-US022811

PATIENT
  Sex: Female
  Weight: 46 kg

DRUGS (9)
  1. AMITRIPTYLINE HCL [Suspect]
     Indication: INSOMNIA
  2. LEVONORGESTREL + ETHINYL ESTRADIOL [Suspect]
     Indication: OSTEOPENIA
  3. AMITRIPTYLINE HCL [Suspect]
     Indication: DEPRESSION
     Route: 065
     Dates: start: 20060701
  4. NIFEDIPINE [Suspect]
     Indication: RAYNAUD'S PHENOMENON
     Route: 065
     Dates: start: 20040101
  5. PROVIGIL [Suspect]
     Route: 048
     Dates: start: 20061001, end: 20080204
  6. CALCIUM CARBONATE [Suspect]
     Indication: OSTEOPENIA
     Dosage: ONE TABLET QD
     Route: 065
     Dates: start: 19980101
  7. PROVIGIL [Suspect]
     Indication: FATIGUE
     Route: 048
     Dates: start: 20060201, end: 20060301
  8. LEVONORGESTREL + ETHINYL ESTRADIOL [Suspect]
     Indication: CONTRACEPTION
     Route: 065
     Dates: start: 20040101
  9. MULTIVITAMIN SUPPLEMENT [Concomitant]

REACTIONS (4)
  - RASH ERYTHEMATOUS [None]
  - ARTHRALGIA [None]
  - LUPUS-LIKE SYNDROME [None]
  - DRUG INTERACTION [None]
